FAERS Safety Report 9292273 (Version 1)
Quarter: 2013Q2

REPORT INFORMATION
  Report Type: Spontaneous
  Country: US (occurrence: None)
  Receive Date: 20130515
  Receipt Date: 20130515
  Transmission Date: 20140414
  Serious: Yes (Death, Hospitalization)
  Sender: FDA-Public Use
  Company Number: None

PATIENT
  Age: 89 Year
  Sex: Female

DRUGS (2)
  1. BEXXAR [Suspect]
     Indication: NON-HODGKIN^S LYMPHOMA
     Dates: start: 20080930, end: 20081101
  2. RITUXIMAB [Suspect]
     Dates: start: 20070601, end: 20071201

REACTIONS (22)
  - Neuropathy peripheral [None]
  - Fall [None]
  - Hypotension [None]
  - Back pain [None]
  - Asthenia [None]
  - Fatigue [None]
  - Abdominal pain [None]
  - Refusal of treatment by patient [None]
  - Hallucination [None]
  - Pain [None]
  - Dizziness [None]
  - No therapeutic response [None]
  - Malignant neoplasm progression [None]
  - Confusional state [None]
  - Memory impairment [None]
  - Nuclear magnetic resonance imaging brain abnormal [None]
  - Cognitive disorder [None]
  - Progressive multifocal leukoencephalopathy [None]
  - B-cell lymphoma [None]
  - Agitation [None]
  - Flight of ideas [None]
  - Disturbance in attention [None]
